FAERS Safety Report 7265042-X (Version None)
Quarter: 2011Q1

REPORT INFORMATION
  Report Type: 
  Country: None (occurrence: None)
  Receive Date: 20110119
  Receipt Date: 20110105
  Transmission Date: 20110831
  Serious: Yes (Other)
  Sender: FDA-Public Use
  Company Number: 2011SP000883

PATIENT
  Sex: Male

DRUGS (2)
  1. RIBAVIRIN [Suspect]
     Indication: HEPATITIS
  2. PEG-INTRON [Suspect]
     Indication: HEPATITIS

REACTIONS (7)
  - NAUSEA [None]
  - HEADACHE [None]
  - INFLUENZA [None]
  - FAECES DISCOLOURED [None]
  - ASTHENIA [None]
  - BLOOD COUNT ABNORMAL [None]
  - HAEMORRHAGE [None]
